FAERS Safety Report 7747105-5 (Version None)
Quarter: 2011Q3

REPORT INFORMATION
  Report Type: 
  Country: None (occurrence: None)
  Receive Date: 20110913
  Receipt Date: 20110907
  Transmission Date: 20111222
  Serious: Yes (Other)
  Sender: FDA-Public Use
  Company Number: US-PFIZER INC-2011172444

PATIENT
  Sex: Female
  Weight: 79.4 kg

DRUGS (3)
  1. PREMARIN [Suspect]
     Dosage: 0.625 MG, 1X/DAY
     Route: 048
     Dates: start: 20000101, end: 20110601
  2. PREMARIN [Suspect]
     Indication: HORMONE REPLACEMENT THERAPY
     Dosage: 0.625 MG, 1X/DAY
     Route: 048
  3. ESTRADIOL [Suspect]
     Indication: HYSTERECTOMY
     Dosage: UNK; TABLET ONCE A DAY
     Route: 048
     Dates: start: 20110601, end: 20110601

REACTIONS (7)
  - HEPATIC ENZYME INCREASED [None]
  - MOOD ALTERED [None]
  - HORMONE LEVEL ABNORMAL [None]
  - HEADACHE [None]
  - HEPATITIS VIRAL [None]
  - IMMUNE SYSTEM DISORDER [None]
  - OEDEMA PERIPHERAL [None]
